FAERS Safety Report 8589193-2 (Version None)
Quarter: 2012Q3

REPORT INFORMATION
  Report Type: 
  Country: None (occurrence: None)
  Receive Date: 20120813
  Receipt Date: 20120801
  Transmission Date: 20120928
  Serious: Yes (Other)
  Sender: FDA-Public Use
  Company Number: HU-ELI_LILLY_AND_COMPANY-HU201208000633

PATIENT
  Age: 63 Year
  Sex: Male

DRUGS (3)
  1. OLANZAPINE [Suspect]
     Dosage: 405 MG, MONTHLY (1/M)
     Route: 030
     Dates: start: 20100602
  2. HALOPERIDOL [Concomitant]
  3. CLONAZEPAM [Concomitant]

REACTIONS (3)
  - SOMNOLENCE [None]
  - GAIT DISTURBANCE [None]
  - DYSARTHRIA [None]
